FAERS Safety Report 8609028-9 (Version None)
Quarter: 2012Q3

REPORT INFORMATION
  Report Type: 
  Country: None (occurrence: None)
  Receive Date: 20120821
  Receipt Date: 20120816
  Transmission Date: 20120928
  Serious: Yes (Other)
  Sender: FDA-Public Use
  Company Number: JP-GLAXOSMITHKLINE-B0823778A

PATIENT

DRUGS (1)
  1. LAMICTAL [Suspect]
     Indication: EPILEPSY
     Route: 048
     Dates: start: 20100101

REACTIONS (5)
  - SOMNOLENCE [None]
  - VOMITING [None]
  - CONVULSION [None]
  - NAUSEA [None]
  - SELF INJURIOUS BEHAVIOUR [None]
